FAERS Safety Report 7737318-0 (Version None)
Quarter: 2011Q3

REPORT INFORMATION
  Report Type: 
  Country: None (occurrence: None)
  Receive Date: 20110908
  Receipt Date: 20110903
  Transmission Date: 20111222
  Serious: Yes (Hospitalization, Other)
  Sender: FDA-Public Use
  Company Number: US-AMGEN-USASP2011045336

PATIENT
  Age: 85 Year
  Sex: Male

DRUGS (2)
  1. CRESTOR [Concomitant]
  2. PROLIA [Suspect]
     Indication: PRODUCT USED FOR UNKNOWN INDICATION
     Dosage: UNK

REACTIONS (3)
  - RENAL FAILURE ACUTE [None]
  - RHABDOMYOLYSIS [None]
  - BLOOD CALCIUM ABNORMAL [None]
